FAERS Safety Report 6181861-5 (Version None)
Quarter: 2009Q2

REPORT INFORMATION
  Report Type: 
  Country: None (occurrence: None)
  Receive Date: 20090504
  Receipt Date: 20090415
  Transmission Date: 20091009
  Serious: Yes (Other)
  Sender: FDA-Public Use
  Company Number: PAR_02960_2009

PATIENT
  Sex: Male
  Weight: 75 kg

DRUGS (9)
  1. IBUPROFEN [Suspect]
     Indication: DRUG USE FOR UNKNOWN INDICATION
     Dosage: (1800 MG)
     Dates: start: 20090224, end: 20090306
  2. RIVAROXABAN [Suspect]
     Indication: HIP ARTHROPLASTY
     Dosage: (10 MG ORAL)
     Route: 048
     Dates: start: 20090223, end: 20090306
  3. RIVAROXABAN [Suspect]
     Indication: THROMBOSIS PROPHYLAXIS
     Dosage: (10 MG ORAL)
     Route: 048
     Dates: start: 20090223, end: 20090306
  4. ELECTROLYTE SOLUTIONS [Concomitant]
  5. RANITIDINE HCL [Concomitant]
  6. RAMIPRIL [Concomitant]
  7. CEFAZOLIN SODIUM [Concomitant]
  8. TUTOFUSIN [Concomitant]
  9. PANTOZOL /01263202/ [Concomitant]

REACTIONS (2)
  - HAEMATOMA [None]
  - HAEMOGLOBIN DECREASED [None]
